FAERS Safety Report 23950893 (Version 1)
Quarter: 2024Q2

REPORT INFORMATION
  Report Type: Report from Study
  Country: US (occurrence: US)
  Receive Date: 20240607
  Receipt Date: 20240607
  Transmission Date: 20240716
  Serious: No
  Sender: FDA-Public Use
  Company Number: US-SPRINGWORKS THERAPEUTICS-SW-001386

PATIENT
  Age: 65 Year
  Sex: Male
  Weight: 97.506 kg

DRUGS (1)
  1. NIROGACESTAT [Suspect]
     Active Substance: NIROGACESTAT
     Indication: Product used for unknown indication
     Dosage: 150.0 MILLIGRAM, BID
     Route: 048
     Dates: start: 20240222, end: 20240303

REACTIONS (9)
  - Nasal dryness [Unknown]
  - Dry mouth [Unknown]
  - Dry throat [Unknown]
  - Dry eye [Unknown]
  - Pyrexia [Unknown]
  - Chills [Unknown]
  - Skin lesion [Unknown]
  - Headache [Unknown]
  - Intentional dose omission [Unknown]

NARRATIVE: CASE EVENT DATE: 20240222
